FAERS Safety Report 8764233 (Version 1)
Quarter: 2012Q4

REPORT INFORMATION
  Report Type: Spontaneous
  Country: US (occurrence: None)
  Receive Date: 20120828
  Receipt Date: 20120828
  Transmission Date: 20130627
  Serious: Yes (Death, Other)
  Sender: FDA-Public Use
  Company Number: TPA2012A04267

PATIENT
  Age: 67 Year
  Sex: Male
  Weight: 88.45 kg

DRUGS (5)
  1. ACTOPLUS MET [Suspect]
     Indication: TYPE 2 DIABETES MELLITUS
     Dates: start: 2008, end: 2011
  2. ACTOPLUS MET [Suspect]
     Indication: BLADDER CANCER
     Dates: start: 2008, end: 2011
  3. AMARYL (GLIMEPIRIDE) [Concomitant]
  4. GLIMEPIRIDE [Concomitant]
  5. METFORMIN [Suspect]

REACTIONS (1)
  - Bladder cancer [None]
